FAERS Safety Report 6347722-3 (Version None)
Quarter: 2009Q3

REPORT INFORMATION
  Report Type: 
  Country: None (occurrence: None)
  Receive Date: 20090910
  Receipt Date: 20090827
  Transmission Date: 20100115
  Serious: Yes (Hospitalization)
  Sender: FDA-Public Use
  Company Number: AU-MYLANLABS-2009S1015334

PATIENT
  Age: 14 Year
  Sex: Female

DRUGS (2)
  1. FLUVOXAMINE MALEATE [Suspect]
     Route: 048
  2. PROMETHAZINE [Interacting]
     Route: 048

REACTIONS (2)
  - DELIRIUM [None]
  - DRUG INTERACTION [None]
